FAERS Safety Report 7855192-9 (Version None)
Quarter: 2011Q4

REPORT INFORMATION
  Report Type: 
  Country: None (occurrence: None)
  Receive Date: 20111026
  Receipt Date: 20111019
  Transmission Date: 20120403
  Serious: Yes (Hospitalization, Other)
  Sender: FDA-Public Use
  Company Number: US-ELI_LILLY_AND_COMPANY-US201107002784

PATIENT
  Sex: Female
  Weight: 117.91 kg

DRUGS (13)
  1. LISINOPRIL [Concomitant]
     Dosage: 20 MG, QD
     Route: 048
     Dates: start: 20100510
  2. EFFIENT [Suspect]
     Indication: PERCUTANEOUS CORONARY INTERVENTION
     Dosage: 10 MG, QD
     Route: 048
     Dates: start: 20100309
  3. DILTIAZEM HCL [Concomitant]
     Dosage: 180 MG, QD
     Route: 048
     Dates: start: 20100510
  4. ASPIRIN [Concomitant]
     Dosage: 325 MG, QD
     Dates: start: 20081202
  5. LASIX [Concomitant]
  6. CARVEDILOL [Concomitant]
     Indication: HYPERTENSION
     Dosage: 12.5 MG, BID
     Route: 048
     Dates: start: 20100304
  7. DILTIAZEM HCL [Concomitant]
     Indication: PROPHYLAXIS
     Dosage: 240 MG, QD
     Route: 048
     Dates: start: 20090518, end: 20100510
  8. MELOXICAM [Concomitant]
     Indication: PAIN
     Dosage: 7.5 MG, QD
     Route: 048
     Dates: end: 20100309
  9. LISINOPRIL [Concomitant]
     Indication: HYPERTENSION
     Dosage: 10 MG, QD
     Route: 048
     Dates: start: 20081202, end: 20100510
  10. SIMVASTATIN [Concomitant]
     Indication: HYPERCHOLESTEROLAEMIA
     Dosage: 40 MG, QD
     Route: 048
     Dates: start: 20100309
  11. HEPARIN SODIUM [Concomitant]
     Indication: ANTICOAGULANT THERAPY
     Dosage: 8000 IU, UNK
     Route: 050
     Dates: start: 20100308, end: 20100308
  12. CEFDINIR [Concomitant]
  13. PLAVIX [Concomitant]
     Indication: ANTIPLATELET THERAPY
     Dosage: 75 MG, QD
     Route: 048
     Dates: start: 20100309, end: 20100309

REACTIONS (2)
  - CARDIAC FAILURE CHRONIC [None]
  - ATRIAL FIBRILLATION [None]
